FAERS Safety Report 5055994-0 (Version None)
Quarter: 2006Q3

REPORT INFORMATION
  Report Type: 
  Country: None (occurrence: None)
  Receive Date: 20060720
  Receipt Date: 20060215
  Transmission Date: 20061208
  Serious: Yes (Hospitalization, Other)
  Sender: FDA-Public Use
  Company Number: FR-JNJFOC-20060703157

PATIENT
  Age: 45 Year
  Sex: Male

DRUGS (1)
  1. ZALDIAR [Suspect]
     Indication: INTENTIONAL OVERDOSE
     Route: 048

REACTIONS (4)
  - COMA [None]
  - DRUG TOXICITY [None]
  - INTENTIONAL OVERDOSE [None]
  - SHOCK [None]
